FAERS Safety Report 9519166 (Version 1)
Quarter: 2013Q3

REPORT INFORMATION
  Report Type: Spontaneous
  Country: US (occurrence: US)
  Receive Date: 20130912
  Receipt Date: 20130912
  Transmission Date: 20140515
  Serious: Yes (Other)
  Sender: FDA-Public Use
  Company Number: US-AMGEN-USASP2013063451

PATIENT
  Age: 61 Year
  Sex: Female

DRUGS (3)
  1. ENBREL [Suspect]
     Indication: RHEUMATOID ARTHRITIS
     Dosage: 50 MG, QWK
     Route: 065
     Dates: start: 20070601, end: 20130701
  2. METHOTREXATE [Concomitant]
     Dosage: 15 MG, QWK
     Dates: start: 1990, end: 20130715
  3. PLAQUENIL                          /00072602/ [Concomitant]
     Dosage: 200 MG, QD
     Route: 048
     Dates: end: 20130810

REACTIONS (9)
  - Cholecystectomy [Recovered/Resolved]
  - Abdominal pain [Recovered/Resolved]
  - Steatorrhoea [Recovered/Resolved]
  - Abnormal faeces [Recovered/Resolved]
  - Constipation [Recovered/Resolved]
  - Diarrhoea [Recovered/Resolved]
  - Fatigue [Not Recovered/Not Resolved]
  - Pain [Not Recovered/Not Resolved]
  - Local swelling [Not Recovered/Not Resolved]
